FAERS Safety Report 18545192 (Version 1)
Quarter: 2020Q4

REPORT INFORMATION
  Report Type: Report from Study
  Country: GB (occurrence: GB)
  Receive Date: 20201125
  Receipt Date: 20201125
  Transmission Date: 20210114
  Serious: Yes (Other)
  Sender: FDA-Public Use
  Company Number: NVSC2020GB296950

PATIENT
  Sex: Male

DRUGS (1)
  1. HYRIMOZ [Suspect]
     Active Substance: ADALIMUMAB-ADAZ
     Indication: PSORIATIC ARTHROPATHY
     Dosage: UNK, Q2W (40MG/0.8ML)
     Route: 065

REACTIONS (3)
  - Psoriatic arthropathy [Unknown]
  - Tonsillitis [Unknown]
  - Product dose omission issue [Unknown]
